FAERS Safety Report 24666994 (Version 1)
Quarter: 2024Q4

REPORT INFORMATION
  Report Type: Spontaneous
  Country: KR (occurrence: KR)
  Receive Date: 20241126
  Receipt Date: 20241126
  Transmission Date: 20250115
  Serious: No
  Sender: ASTELLAS
  Company Number: KR-ASTELLAS-2024-AER-020807

PATIENT
  Sex: Male

DRUGS (2)
  1. VESICARE [Suspect]
     Active Substance: SOLIFENACIN SUCCINATE
     Indication: Neurogenic bladder
     Route: 065
     Dates: start: 20240425, end: 20240530
  2. TAMSULOSIN [Suspect]
     Active Substance: TAMSULOSIN
     Indication: Neurogenic bladder
     Route: 065
     Dates: start: 20240425, end: 20240530

REACTIONS (2)
  - Dry mouth [Unknown]
  - Product use in unapproved indication [Unknown]

NARRATIVE: CASE EVENT DATE: 20240425
